FAERS Safety Report 25411796 (Version 1)
Quarter: 2025Q2

REPORT INFORMATION
  Report Type: Spontaneous
  Country: US (occurrence: US)
  Receive Date: 20250609
  Receipt Date: 20250609
  Transmission Date: 20250717
  Serious: No
  Sender: INNOGENIX, LLC
  Company Number: US-Innogenix, LLC-2178329

PATIENT

DRUGS (5)
  1. BACLOFEN [Suspect]
     Active Substance: BACLOFEN
     Indication: Pain
  2. Unifen [Concomitant]
  3. LYRICA [Concomitant]
     Active Substance: PREGABALIN
  4. LORNOXICAM [Concomitant]
     Active Substance: LORNOXICAM
  5. Napamol [Concomitant]

REACTIONS (1)
  - Drug ineffective [Unknown]
